FAERS Safety Report 5959902-7 (Version None)
Quarter: 2008Q4

REPORT INFORMATION
  Report Type: 
  Country: None (occurrence: None)
  Receive Date: 20081119
  Receipt Date: 20081119
  Transmission Date: 20090506
  Serious: Yes (Hospitalization)
  Sender: FDA-Public Use
  Company Number: None

PATIENT
  Age: 43 Year
  Sex: Female
  Weight: 50 kg

DRUGS (7)
  1. CIPROFLOXACIN [Suspect]
     Indication: INFECTION
     Dosage: 500MG PO BID
     Route: 048
     Dates: start: 20080703, end: 20080710
  2. ACYCLOVIR [Concomitant]
  3. COLACE [Concomitant]
  4. KLONOPIN [Concomitant]
  5. TEMAZEPAM [Concomitant]
  6. VORICONAZOLE [Concomitant]
  7. NEUPOGEN [Concomitant]

REACTIONS (4)
  - PHOTODERMATOSIS [None]
  - RASH MACULO-PAPULAR [None]
  - SKIN EXFOLIATION [None]
  - SUNBURN [None]
